FAERS Safety Report 6012154-4 (Version None)
Quarter: 2008Q4

REPORT INFORMATION
  Report Type: 
  Country: None (occurrence: None)
  Receive Date: 20081210
  Receipt Date: 20080708
  Transmission Date: 20090506
  Serious: Yes (Hospitalization)
  Sender: FDA-Public Use
  Company Number: US-WYE-H04883908

PATIENT
  Age: 67 Year
  Sex: Female

DRUGS (13)
  1. EFFEXOR XR [Suspect]
     Dosage: 37.5 MG 1X PER 1 DAY, ORAL
     Route: 048
  2. NEXIUM [Concomitant]
  3. LOVENOX [Concomitant]
  4. AVELOX [Concomitant]
  5. DETROL [Concomitant]
  6. LIPITOR [Concomitant]
  7. ASPIRIN [Concomitant]
  8. VERAPAMIL [Concomitant]
  9. TYLENOL W/ CODEINE [Concomitant]
  10. MAALOX (ALUMINUM HYDROXIDE GEL/MAGNESIUM HYDROXIDE) [Concomitant]
  11. MILK OF MAGNESIA TAB [Concomitant]
  12. PHENERGAN (DIBROMPROPAMIDINE ISETIONATE/PROMETHAZINE HYDROCHLORIDE) [Concomitant]
  13. LABETALOL HCL [Concomitant]

REACTIONS (2)
  - DRUG SCREEN POSITIVE [None]
  - SYNCOPE [None]
